FAERS Safety Report 5541983-6 (Version None)
Quarter: 2007Q4

REPORT INFORMATION
  Report Type: 
  Country: None (occurrence: None)
  Receive Date: 20071210
  Receipt Date: 20071127
  Transmission Date: 20080405
  Serious: Yes (Hospitalization)
  Sender: FDA-Public Use
  Company Number: US-MERCK-0711USA05020

PATIENT
  Age: 71 Year
  Sex: Female

DRUGS (13)
  1. DECADRON [Suspect]
     Route: 048
  2. THALOMID [Concomitant]
     Indication: MULTIPLE MYELOMA
     Route: 048
     Dates: start: 20070524, end: 20070530
  3. THALOMID [Concomitant]
     Route: 048
     Dates: start: 20070607, end: 20070625
  4. THALOMID [Concomitant]
     Route: 048
     Dates: start: 20070531, end: 20070606
  5. THALOMID [Concomitant]
     Route: 048
     Dates: start: 20070709
  6. COUMADIN [Concomitant]
     Indication: MULTIPLE MYELOMA
     Route: 065
  7. PROTONIX [Concomitant]
     Route: 065
  8. PHYTONADIONE [Concomitant]
     Route: 065
  9. LIPITOR [Concomitant]
     Route: 065
  10. AREDIA [Suspect]
     Indication: BONE LESION
     Route: 042
     Dates: start: 20070724, end: 20070724
  11. AREDIA [Suspect]
     Route: 042
     Dates: start: 20070620, end: 20070620
  12. CLARITIN [Concomitant]
     Route: 065
     Dates: start: 20070809
  13. COUMADIN [Concomitant]
     Route: 065

REACTIONS (10)
  - ABDOMINAL DISTENSION [None]
  - BALANCE DISORDER [None]
  - HAIR GROWTH ABNORMAL [None]
  - JOINT SWELLING [None]
  - NAIL GROWTH ABNORMAL [None]
  - PAIN OF SKIN [None]
  - PRURITUS [None]
  - RASH [None]
  - SYNCOPE [None]
  - URTICARIA [None]
